FAERS Safety Report 8257934-X (Version None)
Quarter: 2012Q1

REPORT INFORMATION
  Report Type: 
  Country: None (occurrence: None)
  Receive Date: 20111211
  Receipt Date: 20111007
  Transmission Date: 20120608
  Serious: No
  Sender: FDA-Public Use
  Company Number: 201109054

PATIENT
  Age: 72 Year
  Sex: Female

DRUGS (10)
  1. THERAGRAN (VITAMINS NOS) [Concomitant]
  2. ASCORBIC ACID [Concomitant]
  3. VITAMIN A (RETINOL PALMITATE) [Concomitant]
  4. RESVERATROL (RESVERATROL) [Concomitant]
  5. GENERAL NUTRIENTS (GENERAL NUTRIENTS) [Concomitant]
  6. XIAFLEX (CLOSTRIDIAL COLLAGENASE) [Suspect]
     Indication: PRODUCT USED FOR UNKNOWN INDICATION
     Dosage: 0.58 MG, 1 IN 1 D, INTRALESIONAL
     Route: 026
     Dates: start: 20110718, end: 20110718
  7. FISH OIL (FISH OIL) [Concomitant]
  8. PRILOSEC [Concomitant]
  9. ANTIHYPERTENSIVES (ANTIHYPERTENSIVES) [Concomitant]
  10. GENERAL NUTRIENTS (GENERAL NUTRIENTS) [Concomitant]

REACTIONS (1)
  - NERVE INJURY [None]
